FAERS Safety Report 7466982-9 (Version None)
Quarter: 2011Q2

REPORT INFORMATION
  Report Type: 
  Country: None (occurrence: None)
  Receive Date: 20110509
  Receipt Date: 20110418
  Transmission Date: 20111010
  Serious: Yes (Life-Threatening, Hospitalization, Other)
  Sender: FDA-Public Use
  Company Number: US-BAYER-200943663NA

PATIENT
  Age: 30 Year
  Sex: Female
  Weight: 83.9 kg

DRUGS (10)
  1. SINGULAIR [Concomitant]
     Indication: ASTHMA
     Dosage: UNK
     Dates: start: 20000101
  2. YASMIN [Suspect]
     Indication: CONTRACEPTION
     Dosage: UNK
     Dates: start: 20030101, end: 20040101
  3. ADVAIR DISKUS 100/50 [Concomitant]
     Indication: ASTHMA
     Dosage: UNK
     Dates: start: 20000101
  4. ACTIVASE [Concomitant]
  5. ALBUTEROL [Concomitant]
     Indication: ASTHMA
     Dosage: UNK
     Dates: start: 20000101
  6. LEVAQUIN [Concomitant]
  7. ANTIBIOTICS [Concomitant]
     Dosage: UNK
     Dates: start: 20041101
  8. LEXAPRO [Concomitant]
     Indication: DEPRESSION
  9. ANTIBIOTICS [Concomitant]
     Dosage: UNK
     Dates: start: 20050201
  10. BACTRIM [Concomitant]

REACTIONS (3)
  - PANCREATITIS [None]
  - CHOLECYSTITIS [None]
  - BILE DUCT STONE [None]
